FAERS Safety Report 7322189-7 (Version None)
Quarter: 2011Q1

REPORT INFORMATION
  Report Type: 
  Country: None (occurrence: None)
  Receive Date: 20110228
  Receipt Date: 20110221
  Transmission Date: 20110831
  Serious: Yes (Other)
  Sender: FDA-Public Use
  Company Number: NO-MERCK-1102NOR00021

PATIENT
  Age: 50 Year
  Sex: Male

DRUGS (1)
  1. SINGULAIR [Suspect]
     Indication: ASTHMA
     Route: 048
     Dates: start: 20010101

REACTIONS (3)
  - DRUG INEFFECTIVE [None]
  - DEAFNESS BILATERAL [None]
  - ALLERGIC GRANULOMATOUS ANGIITIS [None]
